FAERS Safety Report 6758543-1 (Version None)
Quarter: 2010Q2

REPORT INFORMATION
  Report Type: 
  Country: None (occurrence: None)
  Receive Date: 20100607
  Receipt Date: 20100528
  Transmission Date: 20101027
  Serious: Yes (Other)
  Sender: FDA-Public Use
  Company Number: B0659153A

PATIENT
  Age: 55 Year
  Sex: Female

DRUGS (4)
  1. FORTUM [Suspect]
     Dosage: 6G PER DAY
     Route: 042
     Dates: start: 20100505, end: 20100505
  2. ENOXAPARIN SODIUM [Concomitant]
     Indication: THROMBOSIS PROPHYLAXIS
     Route: 058
     Dates: start: 20100505
  3. DEXTROSE [Concomitant]
     Indication: DETOXIFICATION
     Route: 042
     Dates: start: 20100505
  4. SODIUM CHLORIDE [Concomitant]
     Indication: DETOXIFICATION
     Route: 042
     Dates: start: 20100505

REACTIONS (5)
  - ANAPHYLACTOID REACTION [None]
  - BLOOD PRESSURE DECREASED [None]
  - CHEST DISCOMFORT [None]
  - HYPERAEMIA [None]
  - HYPERHIDROSIS [None]
